FAERS Safety Report 9177278 (Version 1)
Quarter: 2013Q1

REPORT INFORMATION
  Report Type: Spontaneous
  Country: DK (occurrence: None)
  Receive Date: 20130319
  Receipt Date: 20130319
  Transmission Date: 20140127
  Serious: Yes (Hospitalization)
  Sender: FDA-Public Use
  Company Number: 2013-1053

PATIENT
  Sex: Female

DRUGS (3)
  1. AZZALURE (BOTULINUM TOXIN TYPE A) (BOTULINUM TOXIN TYPE A) [Suspect]
     Indication: SKIN WRINKLING
     Dosage: (1 IN 1 CYCLE(S))
     Route: 030
     Dates: start: 20130123, end: 20130123
  2. AZZALURE (BOTULINUM TOXIN TYPE A) (BOTULINUM TOXIN TYPE A) [Suspect]
     Indication: SKIN COSMETIC PROCEDURE
     Dosage: (1 IN 1 CYCLE(S))
     Route: 030
     Dates: start: 20130123, end: 20130123
  3. AZZALURE (BOTULINUM TOXIN TYPE A) (BOTULINUM TOXIN TYPE A) [Suspect]
     Indication: OFF LABEL USE
     Dosage: (1 IN 1 CYCLE(S))
     Route: 030
     Dates: start: 20130123, end: 20130123

REACTIONS (3)
  - Epidermolysis [None]
  - Hypersensitivity [None]
  - Face oedema [None]
